FAERS Safety Report 11285867 (Version 1)
Quarter: 2015Q3

REPORT INFORMATION
  Report Type: Other
  Country: GB (occurrence: GB)
  Receive Date: 20150721
  Receipt Date: 20150721
  Transmission Date: 20151125
  Serious: Yes (Other)
  Sender: FDA-Public Use
  Company Number: GB-GLENMARK PHARMACEUTICALS INC, USA.-2015GMK018288

PATIENT

DRUGS (2)
  1. HOMEOPATHIC PREPARATION [Concomitant]
     Active Substance: HOMEOPATHICS
     Indication: NEURALGIA
     Dosage: UNK, TID
  2. GABAPENTIN. [Suspect]
     Active Substance: GABAPENTIN
     Indication: NEUROPATHY PERIPHERAL
     Dosage: 100 MG, UNK
     Dates: start: 20150620, end: 20150623

REACTIONS (3)
  - Off label use [Unknown]
  - Pancreatitis acute [Unknown]
  - Abdominal discomfort [Recovering/Resolving]
